FAERS Safety Report 15457739 (Version 3)
Quarter: 2018Q4

REPORT INFORMATION
  Report Type: Spontaneous
  Country: US (occurrence: US)
  Receive Date: 20181003
  Receipt Date: 20181206
  Transmission Date: 20190204
  Serious: Yes (Other)
  Sender: FDA-Public Use
  Company Number: US-AUROBINDO-AUR-APL-2018-047432

PATIENT
  Sex: Female

DRUGS (1)
  1. LOSARTAN POTASSIUM TABLETS USP 50MG [Suspect]
     Active Substance: LOSARTAN POTASSIUM
     Indication: BLOOD PRESSURE MEASUREMENT
     Dosage: ONE FOR A WEEK
     Route: 065

REACTIONS (8)
  - Throat irritation [Recovered/Resolved]
  - Dysgeusia [Recovered/Resolved]
  - Choking [Recovered/Resolved]
  - Product physical issue [Unknown]
  - Incorrect dose administered [Unknown]
  - Oropharyngeal pain [Recovered/Resolved]
  - Throat tightness [Recovered/Resolved]
  - Drug ineffective [Recovered/Resolved]

NARRATIVE: CASE EVENT DATE: 20180808
